FAERS Safety Report 26034285 (Version 1)
Quarter: 2025Q4

REPORT INFORMATION
  Report Type: Spontaneous
  Country: US (occurrence: None)
  Receive Date: 20251111
  Receipt Date: 20251111
  Transmission Date: 20260118
  Serious: No
  Sender: FDA-CTU
  Company Number: None

PATIENT
  Age: 58 Year
  Sex: Female

DRUGS (10)
  1. XELJANZ XR [Suspect]
     Active Substance: TOFACITINIB CITRATE
     Indication: Rheumatoid arthritis
     Dosage: 11 MG DAILY ORAL
     Route: 048
     Dates: start: 20241113
  2. COLCHICINE [Concomitant]
     Active Substance: COLCHICINE
  3. FAMOTIDINE [Concomitant]
     Active Substance: FAMOTIDINE
  4. FOLIC ACID [Concomitant]
     Active Substance: FOLIC ACID
  5. IBUPROFEN [Concomitant]
     Active Substance: IBUPROFEN
  6. Levothyrsoxine [Concomitant]
  7. VITAMINS [Concomitant]
     Active Substance: VITAMINS
  8. RESTASIS [Concomitant]
     Active Substance: CYCLOSPORINE
  9. BRIMONIDINE [Concomitant]
     Active Substance: BRIMONIDINE TARTRATE
  10. PLAQUENIL [Concomitant]
     Active Substance: HYDROXYCHLOROQUINE SULFATE

REACTIONS (1)
  - Increased tendency to bruise [None]
